FAERS Safety Report 6998594-5 (Version None)
Quarter: 2010Q3

REPORT INFORMATION
  Report Type: 
  Country: None (occurrence: None)
  Receive Date: 20100920
  Receipt Date: 20100111
  Transmission Date: 20110219
  Serious: No
  Sender: FDA-Public Use
  Company Number: US-ASTRAZENECA-2009SE15644

PATIENT
  Age: 594 Month
  Weight: 99.8 kg

DRUGS (7)
  1. SEROQUEL [Suspect]
     Indication: HALLUCINATION
     Route: 048
     Dates: start: 20040101, end: 20090501
  2. GEODON [Concomitant]
  3. RISPERDAL [Concomitant]
  4. ZOLOFT [Concomitant]
  5. DEPAKOTE [Concomitant]
  6. CLONAZEPAM [Concomitant]
  7. TRAZODONE HCL [Concomitant]

REACTIONS (7)
  - BLOOD CHOLESTEROL INCREASED [None]
  - BLOOD TRIGLYCERIDES INCREASED [None]
  - HYPERLIPIDAEMIA [None]
  - OBESITY [None]
  - TREMOR [None]
  - TYPE 2 DIABETES MELLITUS [None]
  - WEIGHT INCREASED [None]
